FAERS Safety Report 15180878 (Version 2)
Quarter: 2018Q3

REPORT INFORMATION
  Report Type: Spontaneous
  Country: IT (occurrence: IT)
  Receive Date: 20180723
  Receipt Date: 20180730
  Transmission Date: 20181010
  Serious: Yes (Life-Threatening, Hospitalization, Other)
  Sender: FDA-Public Use
  Company Number: IT-AUROBINDO-AUR-APL-2018-036988

PATIENT
  Age: 70 Year
  Sex: Female

DRUGS (25)
  1. QUETIAPINE FILM?COATED TABLET [Suspect]
     Active Substance: QUETIAPINE
     Indication: PRODUCT USED FOR UNKNOWN INDICATION
     Dosage: 25 MILLIGRAM, DAILY
     Route: 048
  2. RIVOTRIL [Suspect]
     Active Substance: CLONAZEPAM
     Indication: PRODUCT USED FOR UNKNOWN INDICATION
     Dosage: 18 GTT, DAILY
     Route: 065
  3. LORAZEPAM ORAL DROPS, SOLUTION [Suspect]
     Active Substance: LORAZEPAM
     Dosage: 0.9 MG 18 DROPS
     Route: 065
  4. LORAZEPAM ORAL DROPS, SOLUTION [Suspect]
     Active Substance: LORAZEPAM
     Dosage: 68 GTT, DAILY
     Route: 065
  5. BRILIQUE [Suspect]
     Active Substance: TICAGRELOR
     Indication: PRODUCT USED FOR UNKNOWN INDICATION
     Dosage: , 90 MG, 2X/DAY (BID)180 MILLIGRAM, DAILY
     Route: 048
  6. LOPRESOR                           /00376902/ [Suspect]
     Active Substance: METOPROLOL TARTRATE
     Indication: PRODUCT USED FOR UNKNOWN INDICATION
     Dosage: 25 MILLIGRAM, DAILY
     Route: 048
  7. ATORVASTATIN [Suspect]
     Active Substance: ATORVASTATIN
     Indication: PRODUCT USED FOR UNKNOWN INDICATION
     Dosage: 40 MILLIGRAM, ONCE A DAY
     Route: 048
  8. TIROSINT [Suspect]
     Active Substance: LEVOTHYROXINE SODIUM
     Indication: PRODUCT USED FOR UNKNOWN INDICATION
     Dosage: 25 MILLIGRAM
     Route: 065
  9. TRIAZOLAM. [Suspect]
     Active Substance: TRIAZOLAM
     Indication: PRODUCT USED FOR UNKNOWN INDICATION
     Dosage: 0.25 MILLIGRAM, DAILY
     Route: 065
  10. TRIAZOLAM. [Suspect]
     Active Substance: TRIAZOLAM
     Indication: PRODUCT USED FOR UNKNOWN INDICATION
  11. LORAZEPAM ORAL DROPS, SOLUTION [Suspect]
     Active Substance: LORAZEPAM
     Indication: PRODUCT USED FOR UNKNOWN INDICATION
     Dosage: 20 GTT, UNK
     Route: 065
  12. RIVOTRIL [Suspect]
     Active Substance: CLONAZEPAM
     Dosage: 10 GTT
     Route: 065
     Dates: start: 2015, end: 2015
  13. RIVOTRIL [Suspect]
     Active Substance: CLONAZEPAM
     Dosage: 1.8 MG, 28 DROPS, ONCE DAILY (QD), AT NIGHT
     Route: 065
  14. RIVOTRIL [Suspect]
     Active Substance: CLONAZEPAM
     Dosage: 15 GTT, DAILY
     Route: 065
     Dates: start: 2015, end: 2015
  15. CARDIOASPIRIN [Suspect]
     Active Substance: ASPIRIN
     Indication: PRODUCT USED FOR UNKNOWN INDICATION
  16. LORAZEPAM ORAL DROPS, SOLUTION [Suspect]
     Active Substance: LORAZEPAM
     Dosage: 1 MG, 20 GTT, ONCE A DAY, AT NIGHT
     Route: 065
     Dates: start: 2015, end: 2015
  17. OLANZAPINE. [Suspect]
     Active Substance: OLANZAPINE
     Indication: PRODUCT USED FOR UNKNOWN INDICATION
     Dosage: 5 MILLIGRAM, ONCE A DAY, 5.0 MILLIGRAMS, AT NIGHT
     Route: 065
     Dates: start: 201503, end: 2015
  18. PANTOPRAZOLE [Suspect]
     Active Substance: PANTOPRAZOLE
     Indication: PRODUCT USED FOR UNKNOWN INDICATION
     Dosage: 20 MILLIGRAM, DAILY
     Route: 048
  19. TRITTICO [Suspect]
     Active Substance: TRAZODONE HYDROCHLORIDE
     Indication: PRODUCT USED FOR UNKNOWN INDICATION
     Dosage: 10 GTT
     Route: 065
     Dates: start: 2015
  20. RIVOTRIL [Suspect]
     Active Substance: CLONAZEPAM
     Dosage: 1.8 MILLIGRAM, DAILY 18 DROPS
     Route: 065
     Dates: start: 2015, end: 2015
  21. TRITTICO [Suspect]
     Active Substance: TRAZODONE HYDROCHLORIDE
     Indication: PRODUCT USED FOR UNKNOWN INDICATION
     Dosage: 13 GTT, DAILY HS
     Route: 065
     Dates: start: 201501, end: 201507
  22. TRITTICO [Suspect]
     Active Substance: TRAZODONE HYDROCHLORIDE
     Dosage: 15 GTT, ONCE A DAY, 60 MG/ML, 15 DROPS, AT NIGHT,
     Route: 065
  23. LORAZEPAM ORAL DROPS, SOLUTION [Suspect]
     Active Substance: LORAZEPAM
     Dosage: 0.75 MG 15 DROPS
     Route: 065
     Dates: start: 2015, end: 2015
  24. OLANZAPINE. [Suspect]
     Active Substance: OLANZAPINE
     Dosage: 2.5 MG, ONCE DAILY (QD) HS
     Route: 065
     Dates: start: 201501, end: 201503
  25. CARDIOASPIRIN [Suspect]
     Active Substance: ASPIRIN
     Indication: PRODUCT USED FOR UNKNOWN INDICATION
     Dosage: UNK,DAILY
     Route: 065

REACTIONS (12)
  - Discomfort [Unknown]
  - Weight increased [Unknown]
  - Suicide attempt [Unknown]
  - Feeling cold [Unknown]
  - Epistaxis [Unknown]
  - Hypothyroidism [Unknown]
  - Myocardial ischaemia [Unknown]
  - Electrocardiogram QT prolonged [Unknown]
  - Malaise [Unknown]
  - Electrocardiogram T wave inversion [Unknown]
  - Dyspnoea [Unknown]
  - Fatigue [Unknown]

NARRATIVE: CASE EVENT DATE: 201507
